FAERS Safety Report 19426646 (Version 9)
Quarter: 2022Q1

REPORT INFORMATION
  Report Type: Spontaneous
  Country: JP (occurrence: JP)
  Receive Date: 20210616
  Receipt Date: 20220223
  Transmission Date: 20220424
  Serious: Yes (Death, Hospitalization, Other)
  Sender: FDA-Public Use
  Company Number: JP-BRISTOL-MYERS SQUIBB COMPANY-BMS-2021-056830

PATIENT
  Age: 60 Year
  Sex: Male

DRUGS (3)
  1. OPDIVO [Suspect]
     Active Substance: NIVOLUMAB
     Indication: Metastatic renal cell carcinoma
     Dosage: UNK
     Route: 042
     Dates: start: 2020
  2. OPDIVO [Suspect]
     Active Substance: NIVOLUMAB
     Dosage: 240 MILLIGRAM, FROM THE 2ND MONTH OF ADMINISTRATION
     Route: 041
  3. YERVOY [Suspect]
     Active Substance: IPILIMUMAB
     Indication: Metastatic renal cell carcinoma
     Dosage: UNK
     Route: 041
     Dates: start: 202002

REACTIONS (2)
  - Pneumonia [Fatal]
  - Autoimmune haemolytic anaemia [Recovering/Resolving]
